FAERS Safety Report 7342987-3 (Version None)
Quarter: 2011Q1

REPORT INFORMATION
  Report Type: 
  Country: None (occurrence: None)
  Receive Date: 20110310
  Receipt Date: 20110303
  Transmission Date: 20110831
  Serious: Yes (Other)
  Sender: FDA-Public Use
  Company Number: PHHY2011US14321

PATIENT
  Sex: Female
  Weight: 57.143 kg

DRUGS (1)
  1. GILENYA [Suspect]
     Indication: MULTIPLE SCLEROSIS
     Dosage: 0.5 MG DAILY
     Route: 048
     Dates: start: 20110118, end: 20110224

REACTIONS (3)
  - FUNGAL INFECTION [None]
  - FATIGUE [None]
  - VULVOVAGINAL MYCOTIC INFECTION [None]
